FAERS Safety Report 8918216 (Version 1)
Quarter: 2012Q4

REPORT INFORMATION
  Report Type: 
  Country: US (occurrence: US)
  Receive Date: 20121120
  Receipt Date: 20121120
  Transmission Date: 20130627
  Serious: No
  Sender: FDA-Public Use
  Company Number: US-ASTRAZENECA-2012SE24700

PATIENT
  Age: 44 Year
  Sex: Female
  Weight: 108.9 kg

DRUGS (9)
  1. NEXIUM [Suspect]
     Route: 048
  2. SEROQUEL [Suspect]
     Indication: SLEEP DISORDER
     Route: 048
     Dates: start: 201111, end: 201202
  3. CYMBALTA [Concomitant]
  4. NEURONTIN [Concomitant]
  5. DEPAKOTE [Concomitant]
     Indication: CONVULSION
  6. TRAZODONE [Concomitant]
  7. CLONAZEPAM [Concomitant]
  8. MELOXICAM [Concomitant]
  9. MICRO [Concomitant]
     Indication: ORAL CONTRACEPTION

REACTIONS (4)
  - Mobility decreased [Unknown]
  - Weight increased [Unknown]
  - Increased appetite [Unknown]
  - Bipolar I disorder [Unknown]
